FAERS Safety Report 8932504 (Version 1)
Quarter: 2012Q4

REPORT INFORMATION
  Report Type: Spontaneous
  Country: US (occurrence: None)
  Receive Date: 20121126
  Receipt Date: 20121126
  Transmission Date: 20130627
  Serious: Yes (Disabling, Other)
  Sender: FDA-Public Use
  Company Number: None

PATIENT
  Sex: Female
  Weight: 124.74 kg

DRUGS (2)
  1. TRAZODONE 50 MG [Suspect]
     Indication: SLEEP DISORDER
     Dosage: Traz  1 a night
     Dates: start: 201207
  2. LYRICA 100 MG [Suspect]
     Indication: PAIN
     Dosage: Lyrica  3xday
     Dates: start: 201207

REACTIONS (3)
  - Unevaluable event [None]
  - Neuralgia [None]
  - Hypoaesthesia [None]
